FAERS Safety Report 13267659 (Version 8)
Quarter: 2018Q3

REPORT INFORMATION
  Report Type: Spontaneous
  Country: US (occurrence: US)
  Receive Date: 20170224
  Receipt Date: 20180801
  Transmission Date: 20181010
  Serious: No
  Sender: FDA-Public Use
  Company Number: US-PFIZER INC-2017079786

PATIENT
  Age: 80 Year
  Sex: Female
  Weight: 78 kg

DRUGS (5)
  1. IBRANCE [Suspect]
     Active Substance: PALBOCICLIB
     Dosage: 125 MG, CYCLIC (DAILY DAY 1?21 EVERY 28 DAYS)
     Route: 048
     Dates: start: 20170206
  2. IBRANCE [Suspect]
     Active Substance: PALBOCICLIB
     Dosage: 125 MG, CYCLIC (DAILY DAY 1?21 EVERY 28 DAYS)
     Route: 048
     Dates: start: 20170206
  3. IBRANCE [Suspect]
     Active Substance: PALBOCICLIB
     Dosage: 125 MG, CYCLIC (DAILY MONDAY?FRIDAY Q 21 Q 28 DAYS HOLD SATURDAY AND SUNDAY)
     Route: 048
     Dates: start: 20170206
  4. IBRANCE [Suspect]
     Active Substance: PALBOCICLIB
     Indication: BREAST CANCER METASTATIC
     Dosage: 125 MG, CYCLIC (DAILY DAY 1?21 EVERY 28 DAYS)
     Route: 048
     Dates: start: 20170206
  5. IBRANCE [Suspect]
     Active Substance: PALBOCICLIB
     Dosage: 125 MG, CYCLIC (DAILY DAY 1?21 EVERY 28 DAYS)
     Route: 048
     Dates: start: 20170206

REACTIONS (9)
  - Fatigue [Not Recovered/Not Resolved]
  - Sinusitis [Unknown]
  - Lymphocyte count increased [Unknown]
  - Rash pruritic [Unknown]
  - White blood cell count decreased [Not Recovered/Not Resolved]
  - Neutrophil count decreased [Not Recovered/Not Resolved]
  - Nausea [Not Recovered/Not Resolved]
  - Alopecia [Not Recovered/Not Resolved]
  - Vocal cord polyp [Unknown]

NARRATIVE: CASE EVENT DATE: 2017
